FAERS Safety Report 6433978-5 (Version None)
Quarter: 2009Q4

REPORT INFORMATION
  Report Type: 
  Country: None (occurrence: None)
  Receive Date: 20091110
  Receipt Date: 20091029
  Transmission Date: 20100525
  Serious: Yes (Death, Hospitalization)
  Sender: FDA-Public Use
  Company Number: JP-BRISTOL-MYERS SQUIBB COMPANY-14838965

PATIENT
  Age: 75 Year
  Sex: Male

DRUGS (2)
  1. ERBITUX [Suspect]
     Indication: COLON CANCER
     Dosage: 02OCT209 TO 16OCT09:250 MG/M2 (1 IN 1WK).
     Route: 042
     Dates: start: 20090925, end: 20090925
  2. IRINOTECAN HCL [Suspect]
     Indication: COLON CANCER
     Dosage: MOST RECENT INFUSION ON 09-OCT-2009
     Route: 042
     Dates: start: 20091002, end: 20091009

REACTIONS (2)
  - DIARRHOEA [None]
  - HAEMATOCHEZIA [None]
